FAERS Safety Report 10025289 (Version 1)
Quarter: 2014Q1

REPORT INFORMATION
  Report Type: Spontaneous
  Country: US (occurrence: US)
  Receive Date: 20140320
  Receipt Date: 20140320
  Transmission Date: 20141002
  Serious: Yes (Death, Disabling)
  Sender: FDA-Public Use
  Company Number: US-GLAXOSMITHKLINE-A1064894A

PATIENT
  Age: 51 Year
  Sex: Female

DRUGS (5)
  1. ADVAIR [Suspect]
     Indication: LUNG NEOPLASM MALIGNANT
     Dosage: 1PUFF TWICE PER DAY
     Route: 055
     Dates: start: 2011
  2. CELEBREX [Concomitant]
  3. LOTREL [Concomitant]
  4. SPIRIVA [Concomitant]
  5. SYMBICORT [Concomitant]

REACTIONS (4)
  - Lung neoplasm malignant [Fatal]
  - Pulmonary function test decreased [Unknown]
  - Aphonia [Unknown]
  - Malaise [Unknown]
